FAERS Safety Report 6030991-7 (Version None)
Quarter: 2009Q1

REPORT INFORMATION
  Report Type: 
  Country: None (occurrence: None)
  Receive Date: 20090106
  Receipt Date: 20090106
  Transmission Date: 20090719
  Serious: No
  Sender: FDA-Public Use
  Company Number: None

PATIENT
  Age: 67 Year
  Sex: Female
  Weight: 63.5036 kg

DRUGS (2)
  1. CYMBALTA [Suspect]
     Indication: FIBROMYALGIA
     Dosage: 30 MG AT BEDTIME PO
     Route: 048
     Dates: start: 20070228, end: 20080105
  2. CYMBALTA [Suspect]
     Indication: NEUROPATHY PERIPHERAL
     Dosage: 30 MG AT BEDTIME PO
     Route: 048
     Dates: start: 20070228, end: 20080105

REACTIONS (8)
  - BLOOD BLISTER [None]
  - CONTUSION [None]
  - DEHYDRATION [None]
  - DRUG INEFFECTIVE [None]
  - FEAR [None]
  - HYPERHIDROSIS [None]
  - MYALGIA [None]
  - PHOTOSENSITIVITY REACTION [None]
